FAERS Safety Report 8859201 (Version 2)
Quarter: 2013Q1

REPORT INFORMATION
  Report Type: Spontaneous
  Country: None (occurrence: None)
  Receive Date: 20121023
  Receipt Date: 20121127
  Transmission Date: 20140127
  Serious: Yes (Other)
  Sender: FDA-Public Use
  Company Number: JP-20120055

PATIENT
  Sex: Female

DRUGS (1)
  1. LIPIODOL [Suspect]
     Indication: THERAPEUTIC EMBOLISATION
     Route: 013
     Dates: start: 20110831, end: 20110831

REACTIONS (2)
  - Cholecystitis infective [None]
  - Off label use [None]
